FAERS Safety Report 8583859-6 (Version None)
Quarter: 2012Q3

REPORT INFORMATION
  Report Type: 
  Country: None (occurrence: None)
  Receive Date: 20120810
  Receipt Date: 20120731
  Transmission Date: 20120928
  Serious: Yes (Hospitalization, Disabling, Other)
  Sender: FDA-Public Use
  Company Number: US-009507513-1112USA00794

PATIENT

DRUGS (9)
  1. FOSAMAX [Suspect]
     Indication: OSTEOPOROSIS
     Dosage: 10 MG, UNK
     Route: 048
     Dates: start: 19960417, end: 20030609
  2. ALENDRONATE SODIUM [Suspect]
     Indication: OSTEOPOROSIS
     Dates: end: 20080101
  3. CALCIUM CARBONATE [Concomitant]
     Dosage: 600 MG, BID
  4. FOSAMAX [Suspect]
     Route: 048
     Dates: end: 20080101
  5. FOSAMAX [Suspect]
     Indication: OSTEOPOROSIS PROPHYLAXIS
     Dosage: 70 MG, UNK
     Route: 048
     Dates: start: 20030609, end: 20090512
  6. FOSAMAX [Suspect]
  7. FOSAMAX PLUS D [Suspect]
     Indication: OSTEOPOROSIS PROPHYLAXIS
     Route: 048
  8. FOSAMAX PLUS D [Suspect]
     Indication: OSTEOPOROSIS
  9. ALENDRONATE SODIUM [Suspect]
     Indication: OSTEOPOROSIS PROPHYLAXIS

REACTIONS (22)
  - LOW TURNOVER OSTEOPATHY [None]
  - FEMUR FRACTURE [None]
  - DIVERTICULUM [None]
  - OSTEOMYELITIS [None]
  - NASAL CONGESTION [None]
  - ANAEMIA [None]
  - HYPERTENSION [None]
  - SKIN MASS [None]
  - BONE ABSCESS [None]
  - BONE CYST [None]
  - INSOMNIA [None]
  - HAEMORRHOIDS [None]
  - HYPERLIPIDAEMIA [None]
  - SINUS DISORDER [None]
  - CATARACT [None]
  - OSTEOMALACIA [None]
  - ARTHRALGIA [None]
  - CHANGE OF BOWEL HABIT [None]
  - JOINT INJURY [None]
  - OSTEOARTHRITIS [None]
  - OSTEITIS DEFORMANS [None]
  - MASTOCYTOSIS [None]
